FAERS Safety Report 9572175 (Version 2)
Quarter: 2013Q4

REPORT INFORMATION
  Report Type: Spontaneous
  Country: US (occurrence: US)
  Receive Date: 20131001
  Receipt Date: 20131001
  Transmission Date: 20140711
  Serious: Yes (Other)
  Sender: FDA-Public Use
  Company Number: US-PFIZER INC-2013014650

PATIENT
  Age: 44 Year
  Sex: Female
  Weight: 81.63 kg

DRUGS (8)
  1. LYRICA [Suspect]
     Indication: NEURALGIA
     Dosage: 75 MG, 4X/DAY
  2. BENTYL [Concomitant]
  3. CYCLOBENZAPRINE HYDROCHLORIDE [Concomitant]
     Dosage: 10 MG, 3X/DAY
  4. OXYCODONE HYDROCHLORIDE [Concomitant]
     Dosage: 5 MG, EVERY 4 HRS
  5. OXYCODONE/PARACETAMOL [Concomitant]
     Indication: PAIN
     Dosage: 10-325 MG, 1 TAB Q 4 HRS PRN PAIN FOR 3 DAYS
  6. OXYCODONE/PARACETAMOL [Concomitant]
     Dosage: 10-325 MG, 1-2 TAB Q 4 HRS PRN FOR 30 DAYS
  7. PROZAC [Concomitant]
  8. XANAX [Concomitant]

REACTIONS (3)
  - Abdominal discomfort [Unknown]
  - Blood pressure increased [Unknown]
  - Body mass index increased [Unknown]
